FAERS Safety Report 7199172-8 (Version None)
Quarter: 2010Q4

REPORT INFORMATION
  Report Type: 
  Country: None (occurrence: None)
  Receive Date: 20101215
  Receipt Date: 20101208
  Transmission Date: 20110411
  Serious: Yes (Hospitalization)
  Sender: FDA-Public Use
  Company Number: DKLU1062423

PATIENT
  Age: 3 Year
  Sex: Male

DRUGS (7)
  1. SABRIL [Suspect]
     Indication: EPILEPSY
     Dosage: 500 MG MILLIGRAM(S), 2 IN 1 D, ORAL
     Route: 048
     Dates: start: 20091101
  2. GARDENAL (PHENOBARBITAL SODIUM) [Suspect]
     Indication: EPILEPSY
     Dosage: SEE IMAGE; ORAL
     Route: 048
     Dates: start: 20090101, end: 20100301
  3. GARDENAL (PHENOBARBITAL SODIUM) [Suspect]
     Indication: EPILEPSY
     Dosage: SEE IMAGE; ORAL
     Route: 048
     Dates: start: 20100301
  4. TEGRETOL [Suspect]
     Indication: EPILEPSY
     Dosage: 5 ML MILLILITRE(S), 3 IN 1 D, ORAL
     Route: 048
     Dates: start: 20100201
  5. URSO FALK [Concomitant]
  6. RIFADIN [Concomitant]
  7. ZYRTEC [Concomitant]

REACTIONS (2)
  - PSEUDOPORPHYRIA [None]
  - URINARY TRACT INFECTION [None]
